FAERS Safety Report 12387823 (Version 4)
Quarter: 2016Q4

REPORT INFORMATION
  Report Type: Report from Study
  Country: US (occurrence: US)
  Receive Date: 20160520
  Receipt Date: 20161028
  Transmission Date: 20170207
  Serious: Yes (Hospitalization, Other)
  Sender: FDA-Public Use
  Company Number: US-AMGEN-USASL2016060229

PATIENT
  Age: 89 Year
  Sex: Female

DRUGS (1)
  1. KYPROLIS [Suspect]
     Active Substance: CARFILZOMIB
     Indication: PLASMA CELL MYELOMA
     Dosage: 45 MG, TWICE WEEKLY ON MONDAYS AND TUESDAYS
     Route: 042
     Dates: start: 20160411

REACTIONS (4)
  - Unevaluable event [Unknown]
  - Pain [Unknown]
  - Hospitalisation [Not Recovered/Not Resolved]
  - Malaise [Unknown]

NARRATIVE: CASE EVENT DATE: 20160509
